FAERS Safety Report 9445653 (Version 1)
Quarter: 2013Q3

REPORT INFORMATION
  Report Type: Spontaneous
  Country: US (occurrence: US)
  Receive Date: 20130807
  Receipt Date: 20130807
  Transmission Date: 20140515
  Serious: No
  Sender: FDA-Public Use
  Company Number: US-PFIZER INC-2013228358

PATIENT
  Age: 30 Year
  Sex: Male
  Weight: 83.9 kg

DRUGS (2)
  1. ALPRAZOLAM [Suspect]
     Dosage: 0.5 MG, 4X/DAY
     Route: 048
     Dates: start: 2011
  2. MINOCYCLINE [Concomitant]
     Dosage: UNK

REACTIONS (2)
  - Abdominal discomfort [Unknown]
  - Drug ineffective [Unknown]
